FAERS Safety Report 17806399 (Version 1)
Quarter: 2020Q2

REPORT INFORMATION
  Report Type: Spontaneous
  Country: ES (occurrence: ES)
  Receive Date: 20200520
  Receipt Date: 20200520
  Transmission Date: 20200714
  Serious: Yes (Life-Threatening, Hospitalization)
  Sender: FDA-Public Use
  Company Number: NVSC2020ES137787

PATIENT
  Age: 59 Year
  Sex: Male

DRUGS (2)
  1. CLONAZEPAM. [Interacting]
     Active Substance: CLONAZEPAM
     Indication: MANIA
     Dosage: 15 MG, QD
     Route: 048
     Dates: start: 20200127, end: 20200128
  2. OLANZAPINA [Suspect]
     Active Substance: OLANZAPINE
     Indication: MANIA
     Dosage: 15 MG, QD
     Route: 048
     Dates: start: 20200127, end: 20200128

REACTIONS (1)
  - Coma [Recovered/Resolved]

NARRATIVE: CASE EVENT DATE: 20200128
